FAERS Safety Report 25683214 (Version 1)
Quarter: 2025Q3

REPORT INFORMATION
  Report Type: Spontaneous
  Country: US (occurrence: US)
  Receive Date: 20250814
  Receipt Date: 20250814
  Transmission Date: 20251021
  Serious: Yes (Hospitalization, Other)
  Sender: ALKERMES
  Company Number: US-ALKERMES INC.-ALK-2025-002123

PATIENT
  Age: 29 Year
  Sex: Female
  Weight: 65.306 kg

DRUGS (6)
  1. VIVITROL [Suspect]
     Active Substance: NALTREXONE
     Indication: Product used for unknown indication
     Route: 030
  2. CANNABIS SATIVA SUBSP. INDICA TOP [Suspect]
     Active Substance: CANNABIS SATIVA SUBSP. INDICA TOP
     Indication: Product used for unknown indication
     Route: 065
  3. NARCAN [Concomitant]
     Active Substance: NALOXONE HYDROCHLORIDE
     Indication: Product used for unknown indication
     Route: 065
  4. OLANZAPINE [Concomitant]
     Active Substance: OLANZAPINE
     Indication: Product used for unknown indication
     Route: 065
  5. SEROTINE [Concomitant]
     Indication: Product used for unknown indication
     Route: 065
  6. UNSPECIFIED INGREDIENT [Concomitant]
     Active Substance: UNSPECIFIED INGREDIENT
     Indication: Product used for unknown indication
     Route: 051

REACTIONS (5)
  - Mental disorder [Unknown]
  - Substance use [Unknown]
  - Incorrect route of product administration [Recovered/Resolved]
  - Product administered by wrong person [Recovered/Resolved]
  - Anxiety [Unknown]

NARRATIVE: CASE EVENT DATE: 20250801
